FAERS Safety Report 4628825-8 (Version None)
Quarter: 2005Q2

REPORT INFORMATION
  Report Type: 
  Country: None (occurrence: None)
  Receive Date: 20050406
  Receipt Date: 20050324
  Transmission Date: 20051028
  Serious: Yes (Hospitalization)
  Sender: FDA-Public Use
  Company Number: 212705

PATIENT
  Age: 56 Year
  Sex: Female

DRUGS (8)
  1. AVASTIN [Suspect]
     Indication: BREAST CANCER METASTATIC
     Dosage: 3 MG/KG, Q2W; INTRAVENOUS
     Route: 042
     Dates: start: 20030820
  2. HERCEPTIN [Suspect]
     Indication: BREAST CANCER METASTATIC
     Dosage: 2 MG/KG, 1/WEEK; INTRAVENOUS
     Route: 042
     Dates: start: 20030820
  3. EFFEXOR [Concomitant]
  4. LIPITOR [Concomitant]
  5. PREVACID [Concomitant]
  6. VICODIN (HYDROCODONE BITARTRATE, ACETAMINOPHEN) [Concomitant]
  7. ALEVE [Concomitant]
  8. GLYBURIDE [Concomitant]

REACTIONS (6)
  - GASTROINTESTINAL HAEMORRHAGE [None]
  - HAEMOGLOBIN DECREASED [None]
  - HEPATIC CIRRHOSIS [None]
  - PORTAL HYPERTENSION [None]
  - THROMBOCYTOPENIA [None]
  - VARICES OESOPHAGEAL [None]
